FAERS Safety Report 13449747 (Version 1)
Quarter: 2017Q2

REPORT INFORMATION
  Report Type: Spontaneous
  Country: US (occurrence: US)
  Receive Date: 20170417
  Receipt Date: 20170417
  Transmission Date: 20170830
  Serious: No
  Sender: FDA-Public Use
  Company Number: US-BANPHARM-20164723

PATIENT
  Age: 80 Year
  Sex: Male
  Weight: 68.04 kg

DRUGS (5)
  1. GOUT PRESCRIPTION MEDICATION [Concomitant]
  2. ALEVE [Suspect]
     Active Substance: NAPROXEN SODIUM
     Dosage: 1 DF, ONCE,
     Route: 048
     Dates: start: 20160229, end: 20160229
  3. FOTALOL [Concomitant]
  4. RAMIPRIL. [Concomitant]
     Active Substance: RAMIPRIL
  5. CLOPIBOGREL [Concomitant]

REACTIONS (3)
  - Wrong technique in product usage process [Recovered/Resolved]
  - Product taste abnormal [Unknown]
  - Product size issue [Unknown]

NARRATIVE: CASE EVENT DATE: 20160229
